FAERS Safety Report 18418909 (Version 1)
Quarter: 2020Q4

REPORT INFORMATION
  Report Type: Spontaneous
  Country: AU (occurrence: AU)
  Receive Date: 20201023
  Receipt Date: 20201023
  Transmission Date: 20210114
  Serious: Yes (Other)
  Sender: FDA-Public Use
  Company Number: AU-STRIDES ARCOLAB LIMITED-2019SP008378

PATIENT
  Age: 52 Year
  Sex: Female

DRUGS (5)
  1. ERYTHROMYCIN. [Interacting]
     Active Substance: ERYTHROMYCIN
     Indication: RESPIRATORY TRACT INFECTION
     Dosage: UNK
     Route: 065
  2. COBICISTAT W/ELVITEGRAVIR/EMTRICITA/08773701/ [Interacting]
     Active Substance: COBICISTAT\ELVITEGRAVIR\EMTRICITABINE\TENOFOVIR
     Indication: HIV INFECTION
     Dosage: UNK
     Route: 065
  3. FLUTICASONE FUROATE W/VILANTEROL [Interacting]
     Active Substance: FLUTICASONE FUROATE\VILANTEROL TRIFENATATE
     Indication: BRONCHOPULMONARY ASPERGILLOSIS ALLERGIC
     Dosage: UNK
  4. ITRACONAZOLE. [Suspect]
     Active Substance: ITRACONAZOLE
     Indication: BRONCHOPULMONARY ASPERGILLOSIS ALLERGIC
     Dosage: UNK
     Route: 065
  5. AMOXICILLIN/CLAVULANIC ACID [Concomitant]
     Active Substance: AMOXICILLIN\CLAVULANIC ACID
     Indication: RESPIRATORY TRACT INFECTION
     Dosage: UNK
     Route: 065

REACTIONS (9)
  - Skin atrophy [Unknown]
  - Swelling face [Unknown]
  - Dysphonia [Unknown]
  - Cushing^s syndrome [Unknown]
  - Contusion [Unknown]
  - Cushingoid [Unknown]
  - Myopathy [Unknown]
  - Lipohypertrophy [Unknown]
  - Drug interaction [Unknown]
